FAERS Safety Report 9369328 (Version 1)
Quarter: 2013Q2

REPORT INFORMATION
  Report Type: Spontaneous
  Country: US (occurrence: US)
  Receive Date: 20130626
  Receipt Date: 20130626
  Transmission Date: 20140414
  Serious: Yes (Hospitalization)
  Sender: FDA-Public Use
  Company Number: US-BAYER-2013-078349

PATIENT
  Age: 25 Year
  Sex: Female

DRUGS (3)
  1. YASMIN [Suspect]
     Dosage: ONE DAILY
  2. ZOLOFT [Concomitant]
     Dosage: 50 MG, UNK
  3. VICODIN [Concomitant]

REACTIONS (1)
  - Pulmonary embolism [None]
